FAERS Safety Report 23792168 (Version 1)
Quarter: 2024Q2

REPORT INFORMATION
  Report Type: Spontaneous
  Country: US (occurrence: US)
  Receive Date: 20240429
  Receipt Date: 20240429
  Transmission Date: 20240716
  Serious: No
  Sender: FDA-Public Use
  Company Number: US-JNJFOC-20240461899

PATIENT

DRUGS (14)
  1. REMICADE [Suspect]
     Active Substance: INFLIXIMAB
     Indication: Product used for unknown indication
     Route: 041
  2. STELARA [Suspect]
     Active Substance: USTEKINUMAB
     Indication: Product used for unknown indication
     Route: 058
  3. PENTASA [Concomitant]
     Active Substance: MESALAMINE
  4. ASACOL [Concomitant]
     Active Substance: MESALAMINE
  5. PREDNISONE [Concomitant]
     Active Substance: PREDNISONE
  6. XELJANZ [Concomitant]
     Active Substance: TOFACITINIB CITRATE
  7. ENTOCORT [Concomitant]
     Active Substance: BUDESONIDE
  8. CIPRO [Concomitant]
     Active Substance: CIPROFLOXACIN HYDROCHLORIDE
  9. FLAGYL [Concomitant]
     Active Substance: METRONIDAZOLE\METRONIDAZOLE HYDROCHLORIDE
  10. METHOTREXATE [Concomitant]
     Active Substance: METHOTREXATE
  11. MERCAPTOPURINE [Concomitant]
     Active Substance: MERCAPTOPURINE
  12. HUMIRA [Concomitant]
     Active Substance: ADALIMUMAB
  13. CIMZIA [Concomitant]
     Active Substance: CERTOLIZUMAB PEGOL
  14. ENTYVIO [Concomitant]
     Active Substance: VEDOLIZUMAB

REACTIONS (10)
  - Pyrexia [Unknown]
  - Night sweats [Unknown]
  - Diarrhoea [Unknown]
  - Fatigue [Unknown]
  - Abscess [Unknown]
  - Fistula [Unknown]
  - Haemorrhoids [Unknown]
  - Proctalgia [Unknown]
  - Abdominal pain upper [Unknown]
  - Nausea [Unknown]
